FAERS Safety Report 9268654 (Version 1)
Quarter: 2013Q2

REPORT INFORMATION
  Report Type: Spontaneous
  Country: US (occurrence: US)
  Receive Date: 20130502
  Receipt Date: 20130502
  Transmission Date: 20140414
  Serious: No
  Sender: FDA-Public Use
  Company Number: US-ALEXION-A201300143

PATIENT
  Age: 29 Year
  Sex: Male

DRUGS (3)
  1. SOLIRIS 300MG [Suspect]
     Indication: PAROXYSMAL NOCTURNAL HAEMOGLOBINURIA
     Dosage: UNK
     Route: 042
  2. IRON [Concomitant]
     Indication: ANAEMIA
     Dosage: UNK
  3. FOLIC ACID [Concomitant]
     Indication: ANAEMIA

REACTIONS (3)
  - Feeling cold [Not Recovered/Not Resolved]
  - Fatigue [Not Recovered/Not Resolved]
  - Back pain [Not Recovered/Not Resolved]
